FAERS Safety Report 10960343 (Version 2)
Quarter: 2015Q2

REPORT INFORMATION
  Report Type: Spontaneous
  Country: PL (occurrence: PL)
  Receive Date: 20150327
  Receipt Date: 20150403
  Transmission Date: 20150821
  Serious: Yes (Life-Threatening, Hospitalization, Other)
  Sender: FDA-Public Use
  Company Number: PL-ROCHE-1555152

PATIENT
  Age: 59 Year
  Sex: Male

DRUGS (5)
  1. MABTHERA [Suspect]
     Active Substance: RITUXIMAB
     Indication: LYMPHOMA
     Route: 065
  2. PREDNISOLONE. [Concomitant]
     Active Substance: PREDNISOLONE
  3. VINCRISTINE [Concomitant]
     Active Substance: VINCRISTINE
  4. ETOPOSIDE. [Concomitant]
     Active Substance: ETOPOSIDE
  5. CYCLOPHOSPHAMIDE. [Concomitant]
     Active Substance: CYCLOPHOSPHAMIDE

REACTIONS (6)
  - Haemorrhage [Unknown]
  - Anaemia [Unknown]
  - Gastrointestinal obstruction [Unknown]
  - Haemoglobin decreased [Unknown]
  - Gastrointestinal haemorrhage [Unknown]
  - Coronary artery disease [Unknown]
